FAERS Safety Report 18734071 (Version 3)
Quarter: 2021Q1

REPORT INFORMATION
  Report Type: Spontaneous
  Country: US (occurrence: US)
  Receive Date: 20210113
  Receipt Date: 20210303
  Transmission Date: 20210419
  Serious: No
  Sender: FDA-Public Use
  Company Number: US-PFIZER INC-2021013233

PATIENT
  Age: 52 Year
  Sex: Female
  Weight: 127.01 kg

DRUGS (1)
  1. GENOTROPIN [Suspect]
     Active Substance: SOMATROPIN
     Indication: EMPTY SELLA SYNDROME
     Dosage: UNK, ALTERNATE DAY (TAKE EVERY OTHER DAY, 1.5)

REACTIONS (7)
  - Off label use [Unknown]
  - Device information output issue [Unknown]
  - Device mechanical issue [Unknown]
  - Wrong technique in device usage process [Unknown]
  - Poor quality device used [Unknown]
  - Device issue [Unknown]
  - Drug dose omission by device [Unknown]
